FAERS Safety Report 18544962 (Version 1)
Quarter: 2020Q4

REPORT INFORMATION
  Report Type: Spontaneous
  Country: US (occurrence: US)
  Receive Date: 20201125
  Receipt Date: 20201125
  Transmission Date: 20210114
  Serious: No
  Sender: FDA-Public Use
  Company Number: US-GILEAD-2020-0504988

PATIENT
  Sex: Male

DRUGS (15)
  1. METOPROLOL. [Concomitant]
     Active Substance: METOPROLOL
  2. LOSARTAN. [Concomitant]
     Active Substance: LOSARTAN
  3. AMLODIPINE BESILATE [Concomitant]
     Active Substance: AMLODIPINE BESYLATE
  4. SOFOSBUVIR;VELPATASVIR [Suspect]
     Active Substance: SOFOSBUVIR\VELPATASVIR
     Indication: CHRONIC HEPATITIS C
     Dosage: 1 DOSAGE FORM, QD
     Route: 048
  5. BREO ELLIPTA [Concomitant]
     Active Substance: FLUTICASONE FUROATE\VILANTEROL TRIFENATATE
  6. LAMOTRIGINE. [Concomitant]
     Active Substance: LAMOTRIGINE
  7. ISOSORBIDE DINITRATE. [Concomitant]
     Active Substance: ISOSORBIDE DINITRATE
  8. PREGABALIN. [Concomitant]
     Active Substance: PREGABALIN
  9. DOXEPIN [Concomitant]
     Active Substance: DOXEPIN
  10. SUCRALFATE. [Concomitant]
     Active Substance: SUCRALFATE
  11. VENTOLIN [Concomitant]
     Active Substance: ALBUTEROL SULFATE
  12. ASPIRIN [ACETYLSALICYLIC ACID] [Concomitant]
     Active Substance: ASPIRIN
  13. FLUTICASONE. [Concomitant]
     Active Substance: FLUTICASONE
  14. ASMANEX [Concomitant]
     Active Substance: MOMETASONE FUROATE
  15. BUSPIRONE [Concomitant]
     Active Substance: BUSPIRONE HYDROCHLORIDE

REACTIONS (1)
  - Dysgeusia [Not Recovered/Not Resolved]
